FAERS Safety Report 7124357-6 (Version None)
Quarter: 2010Q4

REPORT INFORMATION
  Report Type: 
  Country: None (occurrence: None)
  Receive Date: 20101126
  Receipt Date: 20101119
  Transmission Date: 20110411
  Serious: Yes (Other)
  Sender: FDA-Public Use
  Company Number: PHHY2010DE79636

PATIENT
  Age: 75 Year
  Sex: Female

DRUGS (2)
  1. ESTRADERM [Suspect]
     Indication: HORMONE REPLACEMENT THERAPY
     Dosage: 1 PATCH EVERY 3 OR 4 DAYS
     Route: 062
  2. ESTRIOL [Concomitant]
     Indication: HORMONE REPLACEMENT THERAPY
     Dosage: VAGINAL TABLETS
     Route: 067

REACTIONS (4)
  - ALOPECIA [None]
  - ARRHYTHMIA [None]
  - HYPERTENSION [None]
  - OEDEMA PERIPHERAL [None]
